FAERS Safety Report 5044493-8 (Version None)
Quarter: 2006Q3

REPORT INFORMATION
  Report Type: 
  Country: None (occurrence: None)
  Receive Date: 20060706
  Receipt Date: 20060630
  Transmission Date: 20061208
  Serious: Yes (Hospitalization)
  Sender: FDA-Public Use
  Company Number: FR-GLAXOSMITHKLINE-B0429651A

PATIENT
  Age: 29 Year
  Sex: Female

DRUGS (2)
  1. AUGMENTIN '125' [Suspect]
     Indication: WOUND
     Dosage: 4UNIT PER DAY
     Route: 048
     Dates: start: 20060407, end: 20060412
  2. TRIFLUCAN [Concomitant]
     Indication: WOUND
     Dosage: 1UNIT PER DAY
     Route: 048
     Dates: start: 20060407, end: 20060410

REACTIONS (3)
  - ALANINE AMINOTRANSFERASE INCREASED [None]
  - ASPARTATE AMINOTRANSFERASE INCREASED [None]
  - GAMMA-GLUTAMYLTRANSFERASE INCREASED [None]
